FAERS Safety Report 20234975 (Version 1)
Quarter: 2021Q4

REPORT INFORMATION
  Report Type: Spontaneous
  Country: US (occurrence: US)
  Receive Date: 20211227
  Receipt Date: 20211227
  Transmission Date: 20220304
  Serious: Yes (Other)
  Sender: FDA-Public Use
  Company Number: US-PURDUE-USA-2020-0211564

PATIENT
  Sex: Male

DRUGS (52)
  1. OXYCONTIN [Suspect]
     Active Substance: OXYCODONE HYDROCHLORIDE
     Indication: Pain
     Dosage: 15 MG, (1-2 EVERY 4 HOURS)
     Route: 048
     Dates: start: 20090921
  2. OXYCONTIN [Suspect]
     Active Substance: OXYCODONE HYDROCHLORIDE
     Dosage: 15 MG, (1-2 EVERY 4 HOURS)
     Route: 048
     Dates: start: 20091106
  3. OXYCONTIN [Suspect]
     Active Substance: OXYCODONE HYDROCHLORIDE
     Dosage: 15 MG, (1-2 EVERY 4 HOURS)
     Route: 048
     Dates: start: 20091204
  4. OXYCONTIN [Suspect]
     Active Substance: OXYCODONE HYDROCHLORIDE
     Dosage: 15 MG, (1-2 EVERY 4 HOURS)
     Route: 048
     Dates: start: 20100316
  5. OXYCONTIN [Suspect]
     Active Substance: OXYCODONE HYDROCHLORIDE
     Dosage: 15 MG, (1-2 EVERY 4 HOURS)
     Route: 048
     Dates: start: 20100420
  6. OXYCONTIN [Suspect]
     Active Substance: OXYCODONE HYDROCHLORIDE
     Dosage: 15 MG, (1-2 EVERY 4 HOURS)
     Route: 048
     Dates: start: 20100520
  7. OXYCONTIN [Suspect]
     Active Substance: OXYCODONE HYDROCHLORIDE
     Dosage: 15 MG, (1-2 EVERY 4 HOURS)
     Route: 048
     Dates: start: 20100617
  8. OXYCONTIN [Suspect]
     Active Substance: OXYCODONE HYDROCHLORIDE
     Dosage: 15 MG, (1-2 EVERY 4 HOURS)
     Route: 048
     Dates: start: 20100715
  9. OXYCONTIN [Suspect]
     Active Substance: OXYCODONE HYDROCHLORIDE
     Dosage: 15 MG, (1-2 EVERY 4 HOURS)
     Route: 048
     Dates: start: 20100902
  10. OXYCONTIN [Suspect]
     Active Substance: OXYCODONE HYDROCHLORIDE
     Dosage: 15 MG, (1-2 EVERY 4 HOURS)
     Route: 048
     Dates: start: 20101022
  11. OXYCONTIN [Suspect]
     Active Substance: OXYCODONE HYDROCHLORIDE
     Dosage: 15 MG, (1-2 EVERY 4 HOURS)
     Route: 048
     Dates: start: 20101122
  12. OXYCONTIN [Suspect]
     Active Substance: OXYCODONE HYDROCHLORIDE
     Dosage: 15 MG, (1-2 EVERY 4 HOURS)
     Route: 048
     Dates: start: 20110816
  13. OXYCONTIN [Suspect]
     Active Substance: OXYCODONE HYDROCHLORIDE
     Dosage: 15 MG, (1-2 EVERY 4 HOURS)
     Route: 048
     Dates: start: 20110920
  14. OXYCONTIN [Suspect]
     Active Substance: OXYCODONE HYDROCHLORIDE
     Dosage: 15 MG, (1-2 EVERY 4 HOURS)
     Route: 048
     Dates: start: 20110930
  15. OXYCONTIN [Suspect]
     Active Substance: OXYCODONE HYDROCHLORIDE
     Dosage: 15 MG, (1-2 EVERY 4 HOURS)
     Route: 048
     Dates: start: 20111230
  16. OXYCONTIN [Suspect]
     Active Substance: OXYCODONE HYDROCHLORIDE
     Dosage: 15 MG, (1-2 EVERY 4 HOURS)
     Route: 048
     Dates: start: 20120117
  17. OXYCONTIN [Suspect]
     Active Substance: OXYCODONE HYDROCHLORIDE
     Dosage: 15 MG, (1-2 EVERY 4 HOURS)
     Route: 048
     Dates: start: 20120521
  18. OXYCONTIN [Suspect]
     Active Substance: OXYCODONE HYDROCHLORIDE
     Dosage: 15 MG, (1-2 EVERY 4 HOURS)
     Route: 048
     Dates: start: 20121001
  19. OXYCONTIN [Suspect]
     Active Substance: OXYCODONE HYDROCHLORIDE
     Dosage: 15 MG, (1-2 EVERY 4 HOURS)
     Route: 048
     Dates: start: 20121108
  20. OXYCONTIN [Suspect]
     Active Substance: OXYCODONE HYDROCHLORIDE
     Dosage: 15 MG, (1-2 EVERY 4 HOURS)
     Route: 048
     Dates: start: 20121112
  21. OXYCONTIN [Suspect]
     Active Substance: OXYCODONE HYDROCHLORIDE
     Dosage: 15 MG, (1-2 EVERY 4 HOURS)
     Route: 048
     Dates: start: 20130308
  22. OXYCONTIN [Suspect]
     Active Substance: OXYCODONE HYDROCHLORIDE
     Dosage: 15 MG, (1-2 EVERY 4 HOURS)
     Route: 048
     Dates: start: 20130708
  23. OXYCONTIN [Suspect]
     Active Substance: OXYCODONE HYDROCHLORIDE
     Dosage: 15 MG, (1-2 EVERY 4 HOURS)
     Route: 048
     Dates: start: 20130709
  24. OXYCONTIN [Suspect]
     Active Substance: OXYCODONE HYDROCHLORIDE
     Dosage: 15 MG, (1-2 EVERY 4 HOURS)
     Route: 048
     Dates: start: 20131001
  25. OXYCONTIN [Suspect]
     Active Substance: OXYCODONE HYDROCHLORIDE
     Dosage: 15 MG, (1-2 EVERY 4 HOURS)
     Route: 048
     Dates: start: 20131001
  26. OXYCONTIN [Suspect]
     Active Substance: OXYCODONE HYDROCHLORIDE
     Dosage: 15 MG, (1-2 EVERY 4 HOURS)
     Route: 048
     Dates: start: 20131121
  27. OXYCONTIN [Suspect]
     Active Substance: OXYCODONE HYDROCHLORIDE
     Dosage: 15 MG, (1-2 EVERY 4 HOURS)
     Route: 048
     Dates: start: 20131226
  28. OXYCONTIN [Suspect]
     Active Substance: OXYCODONE HYDROCHLORIDE
     Dosage: 15 MG, (1-2 EVERY 4 HOURS)
     Route: 048
     Dates: start: 20140314
  29. OXYCONTIN [Suspect]
     Active Substance: OXYCODONE HYDROCHLORIDE
     Dosage: 15 MG, (1-2 EVERY 4 HOURS)
     Route: 048
     Dates: start: 20140623
  30. OXYCONTIN [Suspect]
     Active Substance: OXYCODONE HYDROCHLORIDE
     Dosage: 15 MG, (1-2 EVERY 4 HOURS)
     Route: 048
     Dates: start: 20140922
  31. OXYCONTIN [Suspect]
     Active Substance: OXYCODONE HYDROCHLORIDE
     Dosage: 15 MG, (1-2 EVERY 4 HOURS)
     Route: 048
     Dates: start: 20140929
  32. OXYCONTIN [Suspect]
     Active Substance: OXYCODONE HYDROCHLORIDE
     Dosage: 15 MG, (1-2 EVERY 4 HOURS)
     Route: 048
     Dates: start: 20150130
  33. OXYCONTIN [Suspect]
     Active Substance: OXYCODONE HYDROCHLORIDE
     Dosage: 15 MG, (1-2 EVERY 4 HOURS)
     Route: 048
     Dates: start: 20150424
  34. OXYCONTIN [Suspect]
     Active Substance: OXYCODONE HYDROCHLORIDE
     Dosage: 15 MG, (1-2 EVERY 4 HOURS)
     Route: 048
     Dates: start: 20150807
  35. OXYCONTIN [Suspect]
     Active Substance: OXYCODONE HYDROCHLORIDE
     Dosage: 15 MG, (1-2 EVERY 4 HOURS)
     Route: 048
     Dates: start: 20151123
  36. OXYCONTIN [Suspect]
     Active Substance: OXYCODONE HYDROCHLORIDE
     Dosage: 15 MG, (1-2 EVERY 4 HOURS)
     Route: 048
     Dates: start: 20160304
  37. OXYCONTIN [Suspect]
     Active Substance: OXYCODONE HYDROCHLORIDE
     Dosage: 15 MG, (1-2 EVERY 4 HOURS)
     Route: 048
     Dates: start: 20160616
  38. OXYCONTIN [Suspect]
     Active Substance: OXYCODONE HYDROCHLORIDE
     Dosage: 15 MG, (1-2 EVERY 4 HOURS)
     Route: 048
     Dates: start: 20160712
  39. OXYCONTIN [Suspect]
     Active Substance: OXYCODONE HYDROCHLORIDE
     Dosage: 15 MG, (1-2 EVERY 4 HOURS)
     Route: 048
     Dates: start: 20160927
  40. OXYCONTIN [Suspect]
     Active Substance: OXYCODONE HYDROCHLORIDE
     Dosage: 15 MG, (1-2 EVERY 4 HOURS)
     Route: 048
     Dates: start: 20170306
  41. OXYCONTIN [Suspect]
     Active Substance: OXYCODONE HYDROCHLORIDE
     Dosage: 15 MG, (1-2 EVERY 4 HOURS)
     Route: 048
     Dates: start: 20170630
  42. OXYCONTIN [Suspect]
     Active Substance: OXYCODONE HYDROCHLORIDE
     Dosage: 15 MG, (1-2 EVERY 4 HOURS)
     Route: 048
     Dates: start: 20170725
  43. OXYCONTIN [Suspect]
     Active Substance: OXYCODONE HYDROCHLORIDE
     Dosage: 20 MG, (1-2 EVERY 4 HOURS)
     Route: 048
     Dates: start: 20170816
  44. OXYCONTIN [Suspect]
     Active Substance: OXYCODONE HYDROCHLORIDE
     Dosage: 20 MG, (1-2 EVERY 4 HOURS)
     Route: 048
     Dates: start: 20170725
  45. OXYCONTIN [Suspect]
     Active Substance: OXYCODONE HYDROCHLORIDE
     Dosage: 30 MG, QID PRN
     Route: 048
     Dates: start: 20170818
  46. OXYCONTIN [Suspect]
     Active Substance: OXYCODONE HYDROCHLORIDE
     Dosage: 30 MG, QID PRN
     Route: 048
     Dates: start: 20171024
  47. OXYCONTIN [Suspect]
     Active Substance: OXYCODONE HYDROCHLORIDE
     Dosage: 30 MG, QID PRN
     Route: 048
     Dates: start: 20180130
  48. OXYCODONE HYDROCHLORIDE [Suspect]
     Active Substance: OXYCODONE HYDROCHLORIDE
     Indication: Product used for unknown indication
     Dosage: 30 MG 1 P.M
     Route: 065
  49. OXYCODONE HYDROCHLORIDE [Suspect]
     Active Substance: OXYCODONE HYDROCHLORIDE
     Dosage: 20 MG, Q4H
     Route: 065
  50. OXYCODONE HYDROCHLORIDE [Suspect]
     Active Substance: OXYCODONE HYDROCHLORIDE
     Dosage: 15 MG, Q4H
     Route: 065
  51. ACETAMINOPHEN\OXYCODONE HYDROCHLORIDE [Suspect]
     Active Substance: ACETAMINOPHEN\OXYCODONE HYDROCHLORIDE
     Indication: Pain
     Dosage: UNKNOWN
     Route: 048
  52. HYDROCODONE BITARTRATE AND ACETAMINOPHEN [Suspect]
     Active Substance: ACETAMINOPHEN\HYDROCODONE BITARTRATE
     Indication: Product used for unknown indication
     Dosage: UNKNOWN
     Route: 048

REACTIONS (1)
  - Drug dependence [Unknown]
